FAERS Safety Report 18174509 (Version 1)
Quarter: 2020Q3

REPORT INFORMATION
  Report Type: Spontaneous
  Country: HR (occurrence: HR)
  Receive Date: 20200820
  Receipt Date: 20200820
  Transmission Date: 20201103
  Serious: Yes (Other)
  Sender: FDA-Public Use
  Company Number: HR-TEVA-2020-HR-1816112

PATIENT
  Sex: Female

DRUGS (2)
  1. CERSON [Suspect]
     Active Substance: NITRAZEPAM
     Dosage: 300 MG
     Route: 048
     Dates: start: 20200704, end: 20200704
  2. RAMIPRIL. [Suspect]
     Active Substance: RAMIPRIL
     Dosage: 1 DF = 1 PACK, 1 DOSAGE FORM
     Route: 048
     Dates: start: 20200704, end: 20200704

REACTIONS (3)
  - Suicide attempt [Unknown]
  - Intentional overdose [Unknown]
  - Somnolence [Unknown]

NARRATIVE: CASE EVENT DATE: 20200704
